FAERS Safety Report 7740485-6 (Version None)
Quarter: 2011Q3

REPORT INFORMATION
  Report Type: 
  Country: None (occurrence: None)
  Receive Date: 20110909
  Receipt Date: 20110829
  Transmission Date: 20111222
  Serious: Yes (Other)
  Sender: FDA-Public Use
  Company Number: US-MYLANLABS-2011S1018410

PATIENT
  Age: 44 Year
  Sex: Male

DRUGS (5)
  1. HYDROXYZINE [Concomitant]
     Route: 048
     Dates: start: 20091109
  2. METOPROLOL TARTRATE [Concomitant]
     Route: 048
     Dates: start: 20091222
  3. LORATADINE [Concomitant]
     Route: 048
     Dates: start: 20091030
  4. TRAMADOL HYDROCHLORIDE [Suspect]
     Indication: NEUROPATHY PERIPHERAL
     Dosage: CRUSHED AND FLOATED IN A SMALL AMOUNT OF WATER
     Route: 048
     Dates: start: 20091124
  5. GABAPENTIN [Suspect]
     Indication: NEUROPATHY PERIPHERAL
     Dosage: CRUSHED AND FLOATED IN A SMALL AMOUNT OF WATER
     Route: 048
     Dates: start: 20091027

REACTIONS (5)
  - CHEST PAIN [None]
  - ABDOMINAL PAIN [None]
  - HAEMATOCHEZIA [None]
  - EROSIVE OESOPHAGITIS [None]
  - OESOPHAGEAL HAEMORRHAGE [None]
